FAERS Safety Report 5444361-3 (Version None)
Quarter: 2007Q3

REPORT INFORMATION
  Report Type: 
  Country: None (occurrence: None)
  Receive Date: 20070904
  Receipt Date: 20070904
  Transmission Date: 20080115
  Serious: Yes (Other)
  Sender: FDA-Public Use
  Company Number: None

PATIENT
  Age: 46 Year
  Sex: Female
  Weight: 53.5244 kg

DRUGS (1)
  1. MEDROXYPROGESTERONE [Suspect]
     Indication: ENDOMETRIAL HYPERPLASIA
     Dosage: 10 MG ONCE A DAY PO
     Route: 048
     Dates: start: 20070530, end: 20070620

REACTIONS (11)
  - ABDOMINAL PAIN UPPER [None]
  - ABNORMAL DREAMS [None]
  - ANOREXIA [None]
  - ANXIETY [None]
  - DYSPEPSIA [None]
  - FATIGUE [None]
  - IMPAIRED WORK ABILITY [None]
  - INSOMNIA [None]
  - MENTAL IMPAIRMENT [None]
  - STOMACH DISCOMFORT [None]
  - WEIGHT DECREASED [None]
